FAERS Safety Report 6370952-1 (Version None)
Quarter: 2009Q3

REPORT INFORMATION
  Report Type: 
  Country: None (occurrence: None)
  Receive Date: 20090923
  Receipt Date: 20071017
  Transmission Date: 20100115
  Serious: Yes (Other)
  Sender: FDA-Public Use
  Company Number: US-ASTRAZENECA-2006UW22773

PATIENT
  Age: 43 Year
  Sex: Male
  Weight: 64.4 kg

DRUGS (18)
  1. SEROQUEL [Suspect]
     Indication: SCHIZOPHRENIA
     Route: 048
     Dates: start: 19950101
  2. SEROQUEL [Suspect]
     Indication: BIPOLAR DISORDER
     Route: 048
     Dates: start: 19950101
  3. SEROQUEL [Suspect]
     Indication: DEPRESSION
     Route: 048
     Dates: start: 19950101
  4. SEROQUEL [Suspect]
     Route: 048
     Dates: start: 19950101
  5. SEROQUEL [Suspect]
     Route: 048
     Dates: start: 19950101
  6. SEROQUEL [Suspect]
     Route: 048
     Dates: start: 19950101
  7. SEROQUEL [Suspect]
     Dosage: 200 - 800 MG DAILY
     Route: 048
     Dates: start: 19990914
  8. SEROQUEL [Suspect]
     Dosage: 200 - 800 MG DAILY
     Route: 048
     Dates: start: 19990914
  9. SEROQUEL [Suspect]
     Dosage: 200 - 800 MG DAILY
     Route: 048
     Dates: start: 19990914
  10. TRAZODONE [Concomitant]
     Dates: start: 19990914
  11. DILANTIN [Concomitant]
     Route: 048
     Dates: start: 19991112
  12. ZYPREXA [Concomitant]
     Dates: start: 20010228
  13. ZOLOFT [Concomitant]
     Dates: start: 20011005
  14. REMERON [Concomitant]
     Dates: start: 20010228
  15. GEODON [Concomitant]
     Dates: start: 20040825
  16. CLONAZEPAM [Concomitant]
     Dates: start: 20050208
  17. WARFARIN SODIUM [Concomitant]
     Dates: start: 20060519
  18. DEPAKOTE [Concomitant]
     Dates: start: 20060918

REACTIONS (2)
  - DIABETES MELLITUS [None]
  - PANCREATITIS [None]
